FAERS Safety Report 5584738-9 (Version None)
Quarter: 2008Q1

REPORT INFORMATION
  Report Type: 
  Country: None (occurrence: None)
  Receive Date: 20080103
  Receipt Date: 20071219
  Transmission Date: 20080703
  Serious: Yes (Death, Hospitalization)
  Sender: FDA-Public Use
  Company Number: 2007-04092

PATIENT
  Sex: Female

DRUGS (5)
  1. VELCADE [Suspect]
     Indication: MULTIPLE MYELOMA
     Dosage: 1.50 MG/M2, INTRAVENOUS
     Route: 042
     Dates: start: 20071002, end: 20071116
  2. CORTICOSTEROIDS() [Suspect]
     Indication: MULTIPLE MYELOMA
  3. DEXAMETHASONE TAB [Concomitant]
  4. VITAMIN B [Concomitant]
  5. ACYCLOVIR [Concomitant]

REACTIONS (2)
  - ABDOMINAL PAIN [None]
  - PYREXIA [None]
